FAERS Safety Report 8442037-1 (Version None)
Quarter: 2012Q2

REPORT INFORMATION
  Report Type: 
  Country: None (occurrence: None)
  Receive Date: 20120615
  Receipt Date: 20120607
  Transmission Date: 20120825
  Serious: Yes (Hospitalization)
  Sender: FDA-Public Use
  Company Number: US-BAYER-2012-014294

PATIENT
  Age: 34 Year
  Sex: Female
  Weight: 57.596 kg

DRUGS (12)
  1. MAXALT [Concomitant]
     Dosage: 10 MG, UNK
     Route: 048
     Dates: start: 20100122
  2. PROPRANOLOL [Concomitant]
     Dosage: 10 MG, UNK
     Route: 048
     Dates: start: 20100122
  3. DIAZEPAM [Concomitant]
     Dosage: 10 MG, UNK
     Route: 048
     Dates: start: 20100311
  4. IMITREX [Concomitant]
     Indication: MIGRAINE
  5. YAZ [Suspect]
     Dosage: UNK
     Dates: start: 20071002, end: 20100315
  6. HYDROCODONE BITARTRATE AND ACETAMINOPHEN [Concomitant]
     Dosage: 5/500MG
     Route: 048
     Dates: start: 20100301
  7. PROCHLORPERAZINE [Concomitant]
     Dosage: 10 MG, UNK
     Route: 048
     Dates: start: 20100122
  8. WELLBUTRIN SR [Concomitant]
     Dosage: 150 MG, BID
  9. PERCOCET [Concomitant]
  10. SUMATRIPTAN [Concomitant]
     Dosage: 100 MG, UNK
     Route: 048
     Dates: start: 20100205
  11. CEFADROXIL [Concomitant]
     Dosage: 500 MG, UNK
     Route: 048
     Dates: start: 20100226
  12. BUPROPION HYDROCHLORIDE [Concomitant]
     Dosage: 150 MG, UNK
     Route: 048
     Dates: start: 20100309

REACTIONS (7)
  - MUSCULAR WEAKNESS [None]
  - DEEP VEIN THROMBOSIS [None]
  - ANXIETY [None]
  - PAIN IN EXTREMITY [None]
  - ANHEDONIA [None]
  - OEDEMA PERIPHERAL [None]
  - PAIN [None]
